FAERS Safety Report 22003668 (Version 1)
Quarter: 2023Q1

REPORT INFORMATION
  Report Type: Spontaneous
  Country: FR (occurrence: FR)
  Receive Date: 20230217
  Receipt Date: 20230217
  Transmission Date: 20230418
  Serious: Yes (Hospitalization)
  Sender: FDA-Public Use
  Company Number: None

PATIENT
  Age: 89 Year
  Sex: Female
  Weight: 90 kg

DRUGS (10)
  1. PANTOPRAZOLE [Suspect]
     Active Substance: PANTOPRAZOLE
     Indication: Gastrooesophageal reflux disease
     Dosage: UNIT DOSE: 40 MG , FREQUENCY TIME : 1 DAY, DURATION : 1 YEAR
     Dates: start: 2021, end: 20221115
  2. PAROXETINE [Concomitant]
     Active Substance: PAROXETINE
     Indication: Depression
     Dosage: BASE, UNIT DOSE: 20 MG , FREQUENCY TIME : 1 DAY
  3. AZINC COMPLEX [Concomitant]
     Indication: Mineral supplementation
     Dosage: UNIT DOSE: 1 DF , FREQUENCY TIME : 1 DAY
  4. POLYETHYLENE GLYCOL 4000 [Concomitant]
     Active Substance: POLYETHYLENE GLYCOL 4000
     Indication: Constipation
     Dosage: UNIT DOSE: 1 DF, FREQUENCY TIME : 1 DAY
  5. XARELTO [Concomitant]
     Active Substance: RIVAROXABAN
     Indication: Thrombosis prophylaxis
     Dosage: UNIT DOSE: 15 MG , FREQUENCY TIME : 1 DAY, STRENGTH : 15 MG
  6. FUROSEMIDE [Concomitant]
     Active Substance: FUROSEMIDE
     Indication: Hypertension
     Dosage: UNIT DOSE: 40 MG , FREQUENCY TIME : 1 DAY
  7. PHLOROGLUCINOL [Concomitant]
     Active Substance: PHLOROGLUCINOL
     Indication: Pain
     Dosage: UNIT DOSE: 480 MG , FREQUENCY TIME : 1 DAY, STRENGTH : 80 MG
     Route: 048
  8. CARBOMER [Concomitant]
     Active Substance: CARBOMER
     Indication: Dry eye
     Dosage: LACRIFLUID 0.13%, EYE DROPS IN SOLUTION, UNIT DOSE: 3 DF , FREQUENCY TIME : 1 DAY
  9. ACETAMINOPHEN [Concomitant]
     Active Substance: ACETAMINOPHEN
     Indication: Pain
     Dosage: UNIT DOSE: 1 DF, FREQUENCY TIME : 1 DAY
  10. ACUPAN [Concomitant]
     Active Substance: NEFOPAM HYDROCHLORIDE
     Indication: Pain
     Dosage: UNIT DOSE: 1 DF , FREQUENCY TIME : 1 AS REQUIRED

REACTIONS (2)
  - Hypocalcaemia [Recovered/Resolved]
  - Hypomagnesaemia [Recovered/Resolved]

NARRATIVE: CASE EVENT DATE: 20221108
